FAERS Safety Report 5692799-1 (Version None)
Quarter: 2008Q2

REPORT INFORMATION
  Report Type: 
  Country: None (occurrence: None)
  Receive Date: 20080401
  Receipt Date: 20080321
  Transmission Date: 20081010
  Serious: Yes (Other)
  Sender: FDA-Public Use
  Company Number: 2008-00643

PATIENT
  Age: 58 Year
  Sex: Male

DRUGS (1)
  1. VELCADE [Suspect]
     Indication: MULTIPLE MYELOMA
     Dosage: 1.5 MG, INTRAVENOUS
     Route: 042
     Dates: start: 20080122, end: 20080205

REACTIONS (4)
  - CYTOMEGALOVIRUS INFECTION [None]
  - GASTROINTESTINAL ULCER HAEMORRHAGE [None]
  - HYPERAMMONAEMIA [None]
  - PLATELET COUNT DECREASED [None]
